FAERS Safety Report 9500106 (Version 3)
Quarter: 2013Q4

REPORT INFORMATION
  Report Type: Spontaneous
  Country: US (occurrence: None)
  Receive Date: 20130107
  Receipt Date: 20131226
  Transmission Date: 20140711
  Serious: Yes (Other)
  Sender: FDA-Public Use
  Company Number: PHEH2012US021929

PATIENT
  Sex: Female

DRUGS (3)
  1. GILENYA [Suspect]
     Indication: MULTIPLE SCLEROSIS
     Route: 048
     Dates: start: 20121022
  2. STEROIDS NOS (NO INGREDIENTS/SUBSTANCES) [Concomitant]
  3. DIAMOX [Suspect]

REACTIONS (4)
  - Hyperhidrosis [None]
  - Fluid retention [None]
  - Arthralgia [None]
  - Condition aggravated [None]
